FAERS Safety Report 15433242 (Version 2)
Quarter: 2018Q4

REPORT INFORMATION
  Report Type: Report from Study
  Country: CA (occurrence: CA)
  Receive Date: 20180927
  Receipt Date: 20181106
  Transmission Date: 20190204
  Serious: No
  Sender: FDA-Public Use
  Company Number: CA-NALPROPION PHARMACEUTICALS INC.-2018-005739

PATIENT

DRUGS (11)
  1. LOSEC [Concomitant]
     Active Substance: OMEPRAZOLE
     Indication: GASTROOESOPHAGEAL REFLUX DISEASE
     Dosage: LONG STANDING
     Route: 048
  2. SAXENDA [Concomitant]
     Active Substance: LIRAGLUTIDE
     Indication: FOOD CRAVING
     Dosage: UNK
     Route: 065
  3. NADOLOL. [Concomitant]
     Active Substance: NADOLOL
     Indication: BLOOD PRESSURE ABNORMAL
     Dosage: LONG STANDING (80 MG,1 IN 1 D)
     Route: 048
  4. JARDIANCE [Concomitant]
     Active Substance: EMPAGLIFLOZIN
     Indication: BLOOD GLUCOSE ABNORMAL
     Dosage: UNK
     Route: 048
     Dates: start: 201805
  5. CRESTOR [Concomitant]
     Active Substance: ROSUVASTATIN CALCIUM
     Indication: BLOOD CHOLESTEROL INCREASED
     Dosage: LONG STANDING (1 IN 1 D)
     Route: 048
  6. CONTRAVE [Suspect]
     Active Substance: BUPROPION HYDROCHLORIDE\NALTREXONE HYDROCHLORIDE
     Dosage: SECOND WEEK OF SEP/2018, INCREASED GRADUALLY (1 DOSAGE FORMS,1 IN 1 D)
     Route: 048
     Dates: start: 201809
  7. LOSEC [Concomitant]
     Active Substance: OMEPRAZOLE
     Indication: GASTROOESOPHAGEAL REFLUX DISEASE
     Dosage: LONG STANDING (1 IN 1D)
     Route: 048
  8. CONTRAVE [Suspect]
     Active Substance: BUPROPION HYDROCHLORIDE\NALTREXONE HYDROCHLORIDE
     Dosage: ONE IN THE MORNING AND ONE AT NIGHT (1 DOSAGE FORMS,2 IN 1 D)
     Route: 048
     Dates: start: 201807, end: 201807
  9. CONTRAVE [Suspect]
     Active Substance: BUPROPION HYDROCHLORIDE\NALTREXONE HYDROCHLORIDE
     Dosage: 2 PILLS IN THE MORNING AND 1 AT NIGHT (2 IN 1 D)
     Route: 048
     Dates: start: 20180720, end: 20180727
  10. CRESTOR [Concomitant]
     Active Substance: ROSUVASTATIN CALCIUM
     Indication: BLOOD CHOLESTEROL INCREASED
  11. CONTRAVE [Suspect]
     Active Substance: BUPROPION HYDROCHLORIDE\NALTREXONE HYDROCHLORIDE
     Indication: WEIGHT CONTROL
     Dosage: EACH PILL 80MG/90MG (1 DOSAGE FORMS,1 IN 1 D)
     Route: 048
     Dates: start: 201807, end: 201807

REACTIONS (4)
  - Drug titration error [Unknown]
  - Enterocolitis [Recovered/Resolved]
  - Haematochezia [Recovered/Resolved]
  - Nausea [Recovered/Resolved]

NARRATIVE: CASE EVENT DATE: 201807
